FAERS Safety Report 23383602 (Version 4)
Quarter: 2024Q3

REPORT INFORMATION
  Report Type: Spontaneous
  Country: US (occurrence: US)
  Receive Date: 20240109
  Receipt Date: 20240828
  Transmission Date: 20241016
  Serious: No
  Sender: SANOFI AVENTIS
  Company Number: US-SA-SAC20231228000363

PATIENT
  Age: 59 Year
  Sex: Female

DRUGS (2)
  1. DUPIXENT [Suspect]
     Active Substance: DUPILUMAB
     Indication: Dermatitis atopic
     Dosage: 600 MG, 1X
     Route: 058
     Dates: start: 20231125, end: 20231125
  2. DUPIXENT [Suspect]
     Active Substance: DUPILUMAB
     Dosage: 300 MG, QOW
     Route: 058
     Dates: start: 20231210

REACTIONS (12)
  - Gastrointestinal disorder [Unknown]
  - Blood cholesterol increased [Unknown]
  - Joint injury [Recovering/Resolving]
  - Lacrimation increased [Unknown]
  - Condition aggravated [Unknown]
  - Vision blurred [Unknown]
  - Condition aggravated [Unknown]
  - Oral herpes [Unknown]
  - Eye pruritus [Unknown]
  - Arthralgia [Unknown]
  - Dry eye [Unknown]
  - Condition aggravated [Unknown]

NARRATIVE: CASE EVENT DATE: 20230101
